FAERS Safety Report 6783254-6 (Version None)
Quarter: 2010Q2

REPORT INFORMATION
  Report Type: 
  Country: None (occurrence: None)
  Receive Date: 20100617
  Receipt Date: 20100610
  Transmission Date: 20101027
  Serious: Yes (Hospitalization)
  Sender: FDA-Public Use
  Company Number: 013721

PATIENT
  Sex: Male

DRUGS (2)
  1. XYZALL /01530201/ (XYZALL) [Suspect]
     Dosage: (ORAL)
     Route: 048
     Dates: start: 20100301, end: 20100301
  2. PAROXETINE HCL [Suspect]
     Dosage: (ORAL)
     Route: 048
     Dates: start: 20091201, end: 20100301

REACTIONS (5)
  - ALANINE AMINOTRANSFERASE INCREASED [None]
  - ASPARTATE AMINOTRANSFERASE INCREASED [None]
  - BILIRUBIN CONJUGATED INCREASED [None]
  - GAMMA-GLUTAMYLTRANSFERASE INCREASED [None]
  - JAUNDICE [None]
